FAERS Safety Report 15755008 (Version 1)
Quarter: 2018Q4

REPORT INFORMATION
  Report Type: Spontaneous
  Country: GB (occurrence: GB)
  Receive Date: 20181224
  Receipt Date: 20181224
  Transmission Date: 20190205
  Serious: Yes (Hospitalization, Other)
  Sender: FDA-Public Use
  Company Number: GB-ACCORD-096879

PATIENT
  Age: 36 Year
  Sex: Male
  Weight: 128 kg

DRUGS (3)
  1. CLOZAPINE. [Suspect]
     Active Substance: CLOZAPINE
     Indication: SCHIZOPHRENIA
     Route: 048
     Dates: end: 20171218
  2. OLANZAPINE. [Concomitant]
     Active Substance: OLANZAPINE
  3. PALIPERIDONE. [Concomitant]
     Active Substance: PALIPERIDONE

REACTIONS (6)
  - Headache [Unknown]
  - Myocarditis [Recovering/Resolving]
  - Dizziness [Unknown]
  - Pallor [Unknown]
  - Viral infection [Unknown]
  - Fatigue [Unknown]

NARRATIVE: CASE EVENT DATE: 20171214
